FAERS Safety Report 16633183 (Version 3)
Quarter: 2019Q4

REPORT INFORMATION
  Report Type: Report from Study
  Country: EG (occurrence: EG)
  Receive Date: 20190725
  Receipt Date: 20191218
  Transmission Date: 20200122
  Serious: Yes (Other)
  Sender: FDA-Public Use
  Company Number: EG-REGENERON PHARMACEUTICALS, INC.-2019-43770

PATIENT

DRUGS (7)
  1. EYLEA [Suspect]
     Active Substance: AFLIBERCEPT
     Dosage: UNK, LEFT EYE, 2ND DOSE
     Dates: start: 201904, end: 201904
  2. EYLEA [Suspect]
     Active Substance: AFLIBERCEPT
     Dosage: UNK, LEFT EYE, 4TH DOSE
     Dates: start: 201906, end: 201906
  3. DIAMICRON [Concomitant]
     Active Substance: GLICLAZIDE
     Indication: PRODUCT USED FOR UNKNOWN INDICATION
     Dosage: UNK
     Dates: start: 1989
  4. COVERSYL                           /00790703/ [Concomitant]
     Active Substance: PERINDOPRIL
     Indication: PRODUCT USED FOR UNKNOWN INDICATION
     Dosage: UNK
     Dates: start: 1989
  5. EYLEA [Suspect]
     Active Substance: AFLIBERCEPT
     Dosage: UNK, LEFT EYE, 3RD DOSE
     Dates: start: 20190525, end: 20190525
  6. EYLEA [Suspect]
     Active Substance: AFLIBERCEPT
     Indication: DIABETIC RETINAL OEDEMA
     Dosage: UNK, LEFT EYE
     Dates: start: 201903
  7. ASPIRIN                            /00002701/ [Concomitant]
     Active Substance: ASPIRIN
     Indication: PRODUCT USED FOR UNKNOWN INDICATION
     Dosage: UNK
     Dates: start: 1989

REACTIONS (3)
  - Inappropriate schedule of product administration [Unknown]
  - Product prescribing issue [Unknown]
  - Headache [Recovered/Resolved]

NARRATIVE: CASE EVENT DATE: 201903
